FAERS Safety Report 9225720 (Version 1)
Quarter: 2013Q1

REPORT INFORMATION
  Report Type: Spontaneous
  Country: US (occurrence: None)
  Receive Date: 20120914
  Receipt Date: 20120914
  Transmission Date: 20140127
  Serious: Yes (Other)
  Sender: FDA-Public Use
  Company Number: JPI-P-017487

PATIENT
  Age: 54 Year
  Sex: Female

DRUGS (4)
  1. XYREM (500 MILLIGRAM/MILLILITERS, SOLUTION) (SODIUM OXYBATE) [Suspect]
     Indication: FIBROMYALGIA
     Route: 048
     Dates: start: 20110221, end: 2011
  2. ZONISAMIDE [Suspect]
     Indication: PRODUCT USED FOR UNKNOWN INDICATION
     Dates: end: 20111004
  3. HYDROCODONE BITARTRATE AND ACETAMINOPHEN [Concomitant]
  4. MODAFINIL [Concomitant]

REACTIONS (4)
  - Arthralgia [None]
  - Condition aggravated [None]
  - Pain [None]
  - Procedural pain [None]
